FAERS Safety Report 18962718 (Version 1)
Quarter: 2021Q1

REPORT INFORMATION
  Report Type: Spontaneous
  Country: CH (occurrence: CH)
  Receive Date: 20210223
  Receipt Date: 20210223
  Transmission Date: 20210420
  Serious: Yes (Hospitalization, Other)
  Sender: FDA-Public Use
  Company Number: CH-GUERBET-CH 2007 0009

PATIENT
  Sex: Female
  Weight: 59.5 kg

DRUGS (7)
  1. DOTAREM [Suspect]
     Active Substance: GADOTERATE MEGLUMINE
     Dates: start: 20040128, end: 20040128
  2. GADOVIST [Suspect]
     Active Substance: GADOBUTROL
     Route: 042
     Dates: start: 20001122, end: 20001122
  3. IOPAMIRO [Concomitant]
     Active Substance: IOPAMIDOL
     Indication: ANGIOGRAM
     Route: 042
     Dates: start: 20051102, end: 20051102
  4. DOTAREM [Suspect]
     Active Substance: GADOTERATE MEGLUMINE
     Indication: ANGIOGRAM
     Route: 065
     Dates: start: 20050706, end: 20050706
  5. DOTAREM [Suspect]
     Active Substance: GADOTERATE MEGLUMINE
     Indication: MAGNETIC RESONANCE IMAGING SPINAL
     Route: 065
     Dates: start: 20040809, end: 20040809
  6. GADOVIST [Suspect]
     Active Substance: GADOBUTROL
     Indication: ANGIOGRAM
     Route: 042
     Dates: start: 20051025, end: 20051025
  7. MAGNEVIST [Suspect]
     Active Substance: GADOPENTETATE DIMEGLUMINE
     Indication: MAGNETIC RESONANCE IMAGING
     Route: 065
     Dates: start: 19990222, end: 19990222

REACTIONS (1)
  - Nephrogenic systemic fibrosis [Not Recovered/Not Resolved]

NARRATIVE: CASE EVENT DATE: 20051105
